FAERS Safety Report 16456438 (Version 1)
Quarter: 2019Q2

REPORT INFORMATION
  Report Type: Spontaneous
  Country: AT (occurrence: AT)
  Receive Date: 20190620
  Receipt Date: 20190620
  Transmission Date: 20190711
  Serious: Yes (Other)
  Sender: FDA-Public Use
  Company Number: AT-AMGEN-AUTSP2019095101

PATIENT
  Age: 64 Year
  Sex: Female

DRUGS (11)
  1. SANDIMMUN [Concomitant]
     Active Substance: CYCLOSPORINE
  2. CELLCEPT [Concomitant]
     Active Substance: MYCOPHENOLATE MOFETIL\MYCOPHENOLATE MOFETIL HYDROCHLORIDE
  3. PREDNISOLONE. [Concomitant]
     Active Substance: PREDNISOLONE
     Dosage: 5 MILLIGRAM
  4. XGEVA [Suspect]
     Active Substance: DENOSUMAB
     Indication: PROPHYLAXIS
     Dosage: UNK, Q6MO
     Route: 065
     Dates: start: 201804
  5. NOMEXOR [Concomitant]
     Active Substance: NEBIVOLOL HYDROCHLORIDE
  6. LIDAPRIM [SULFAMETROLE;TRIMETHOPRIM] [Concomitant]
  7. THYREX [Concomitant]
     Active Substance: LEVOTHYROXINE SODIUM
  8. CAL D VITA [Concomitant]
     Dosage: 2 DOSAGE FORM, QD
  9. OLEOVIT [RETINOL] [Concomitant]
     Dosage: 40 DROPS, QWK
  10. AMLODIPINE [Concomitant]
     Active Substance: AMLODIPINE BESYLATE
  11. XGEVA [Suspect]
     Active Substance: DENOSUMAB
     Indication: BONE GIANT CELL TUMOUR

REACTIONS (1)
  - Tooth resorption [Unknown]
